FAERS Safety Report 10219798 (Version 2)
Quarter: 2014Q2

REPORT INFORMATION
  Report Type: Spontaneous
  Country: CA (occurrence: CA)
  Receive Date: 20140605
  Receipt Date: 20140620
  Transmission Date: 20141212
  Serious: Yes (Other)
  Sender: FDA-Public Use
  Company Number: CA-PFIZER INC-2014149620

PATIENT
  Age: 58 Year
  Sex: Male

DRUGS (5)
  1. CELEBREX [Suspect]
     Dosage: 100 MG, 2X/DAY
  2. VIREAD [Interacting]
     Indication: HIV INFECTION
     Dosage: UNK
  3. CITALOPRAM [Concomitant]
     Dosage: UNK
  4. GABAPENTIN [Concomitant]
     Dosage: UNK
  5. ZOPICLONE [Concomitant]
     Dosage: UNK

REACTIONS (2)
  - Fanconi syndrome [Recovered/Resolved]
  - Drug interaction [Recovered/Resolved]
